FAERS Safety Report 13570556 (Version 1)
Quarter: 2017Q2

REPORT INFORMATION
  Report Type: Spontaneous
  Country: GB (occurrence: GB)
  Receive Date: 20170522
  Receipt Date: 20170522
  Transmission Date: 20170830
  Serious: Yes (Other)
  Sender: FDA-Public Use
  Company Number: GB-ASTRAZENECA-2017SE52307

PATIENT
  Sex: Female

DRUGS (9)
  1. MULTIVITAMIN [Concomitant]
     Active Substance: VITAMINS
  2. CHLORPHENAMINE [Concomitant]
     Active Substance: CHLORPHENIRAMINE MALEATE
  3. COD-LIVER OIL [Concomitant]
     Active Substance: FISH OIL
  4. ANASTROZOLE. [Suspect]
     Active Substance: ANASTROZOLE
     Dosage: 245 MG DAILY
     Route: 048
     Dates: start: 20170401, end: 20170419
  5. THYROXINE [Concomitant]
     Active Substance: LEVOTHYROXINE
  6. LETROZOLE. [Suspect]
     Active Substance: LETROZOLE
     Route: 065
     Dates: start: 20161001, end: 20170301
  7. BEZAFIBRATE [Concomitant]
     Active Substance: BEZAFIBRATE
  8. IBUPROFEN. [Concomitant]
     Active Substance: IBUPROFEN
  9. PARACETAMOL [Concomitant]
     Active Substance: ACETAMINOPHEN

REACTIONS (6)
  - Fibromyalgia [Recovered/Resolved]
  - Abnormal weight gain [Recovered/Resolved]
  - Irritability [Recovered/Resolved]
  - Arthralgia [Recovered/Resolved]
  - Hot flush [Recovered/Resolved]
  - Myalgia [Unknown]
